FAERS Safety Report 23167785 (Version 1)
Quarter: 2023Q4

REPORT INFORMATION
  Report Type: Spontaneous
  Country: GB (occurrence: GB)
  Receive Date: 20231109
  Receipt Date: 20231109
  Transmission Date: 20240109
  Serious: Yes (Other)
  Sender: FDA-Public Use
  Company Number: GB-MLMSERVICE-20231026-4625372-1

PATIENT
  Age: 4 Decade
  Sex: Male
  Weight: 48.7 kg

DRUGS (15)
  1. HYDROCORTISONE [Suspect]
     Active Substance: HYDROCORTISONE
     Indication: Evidence based treatment
     Dosage: HIGH- DOSE HYDROCORTISONE
     Route: 042
  2. MESALAMINE [Suspect]
     Active Substance: MESALAMINE
     Indication: Evidence based treatment
     Route: 065
  3. BUDESONIDE [Suspect]
     Active Substance: BUDESONIDE
     Indication: Evidence based treatment
     Dosage: BUDESONIDE (9 MG DAILY, OPEN CAPSULE) FOR 2-3 WEEKS
     Route: 065
  4. METRONIDAZOLE [Suspect]
     Active Substance: METRONIDAZOLE
     Indication: Evidence based treatment
     Route: 065
  5. PREDNISOLONE [Suspect]
     Active Substance: PREDNISOLONE
     Indication: Evidence based treatment
     Dosage: WEANING COURSE OF ORAL PREDNISOLONE
     Route: 048
  6. PREDNISOLONE [Suspect]
     Active Substance: PREDNISOLONE
     Dosage: PREDNISOLONE (STARTING DOSE 40 MG WEANING BY 5 MG EVERY 5 DAYS) OVER 4 WEEKS
     Route: 065
  7. PREDNISOLONE [Suspect]
     Active Substance: PREDNISOLONE
     Dosage: PREDNISOLONE (STARTING DOSE 40 MG WEANING BY 5 MG EVERY 5 DAYS) OVER 4 WEEKS
     Route: 065
  8. LOPERAMIDE [Suspect]
     Active Substance: LOPERAMIDE
     Indication: Evidence based treatment
     Route: 065
  9. DOXYCYCLINE [Suspect]
     Active Substance: DOXYCYCLINE
     Indication: Evidence based treatment
     Route: 065
  10. COLESEVELAM [Suspect]
     Active Substance: COLESEVELAM
     Indication: Evidence based treatment
     Route: 065
  11. COLESEVELAM [Suspect]
     Active Substance: COLESEVELAM
     Dosage: DOSE INCREASED
     Route: 065
  12. COLESTIPOL [Suspect]
     Active Substance: COLESTIPOL
     Indication: Evidence based treatment
     Route: 065
  13. CIPROFLOXACIN [Suspect]
     Active Substance: CIPROFLOXACIN
     Indication: Evidence based treatment
     Route: 065
  14. CREON [Suspect]
     Active Substance: PANCRELIPASE AMYLASE\PANCRELIPASE LIPASE\PANCRELIPASE PROTEASE
     Indication: Evidence based treatment
     Dosage: CREON 40,000-50, 000 UNITS THREE TIMES A DAY
     Route: 065
  15. OCTREOTIDE [Suspect]
     Active Substance: OCTREOTIDE
     Indication: Evidence based treatment
     Dosage: OCTREOTIDE (OCT) 50-100 UG THREE TIMES A DAY
     Route: 065

REACTIONS (4)
  - Kaposi^s sarcoma [Recovering/Resolving]
  - Human herpesvirus 8 infection [Recovering/Resolving]
  - Infection reactivation [Recovering/Resolving]
  - Therapy non-responder [Unknown]
